FAERS Safety Report 8595088-0 (Version None)
Quarter: 2012Q3

REPORT INFORMATION
  Report Type: 
  Country: None (occurrence: None)
  Receive Date: 20120815
  Receipt Date: 20120808
  Transmission Date: 20120928
  Serious: Yes (Hospitalization, Other)
  Sender: FDA-Public Use
  Company Number: AU-GENZYME-CERZ-1002594

PATIENT
  Sex: Female

DRUGS (2)
  1. CEREZYME [Suspect]
     Indication: GAUCHER'S DISEASE
     Dosage: UNK UNK, UNK
     Route: 042
  2. TALIGLUCERASE [Suspect]
     Indication: GAUCHER'S DISEASE
     Dosage: UNK UNK, UNK
     Route: 042
     Dates: start: 20100101

REACTIONS (1)
  - PANCREATITIS RELAPSING [None]
